FAERS Safety Report 4822798-0 (Version None)
Quarter: 2005Q4

REPORT INFORMATION
  Report Type: 
  Country: None (occurrence: None)
  Receive Date: 20051107
  Receipt Date: 20051107
  Transmission Date: 20060501
  Serious: Yes (Other)
  Sender: FDA-Public Use
  Company Number: None

PATIENT
  Sex: Male
  Weight: 99.7913 kg

DRUGS (5)
  1. DANTRIUM [Suspect]
     Indication: CLOSED HEAD INJURY
     Dosage: 50 MG PO TID
     Route: 048
     Dates: end: 20050101
  2. DANTRIUM [Suspect]
     Indication: MUSCLE SPASTICITY
     Dosage: 50 MG PO TID
     Route: 048
     Dates: end: 20050101
  3. TEGRETOL [Concomitant]
  4. KEPPRA [Concomitant]
  5. COLACE [Concomitant]

REACTIONS (2)
  - DRUG INEFFECTIVE [None]
  - THERAPEUTIC RESPONSE UNEXPECTED WITH DRUG SUBSTITUTION [None]
